FAERS Safety Report 5141698-2 (Version None)
Quarter: 2006Q4

REPORT INFORMATION
  Report Type: 
  Country: None (occurrence: None)
  Receive Date: 20061026
  Receipt Date: 20061016
  Transmission Date: 20070319
  Serious: Yes (Hospitalization)
  Sender: FDA-Public Use
  Company Number: 163-21880-06100786

PATIENT
  Age: 46 Year
  Sex: Female

DRUGS (9)
  1. REVLIMID [Suspect]
     Indication: MYELODYSPLASTIC SYNDROME
     Dosage: 5 MG, 1 IN 1 D, ORAL
     Route: 048
     Dates: start: 20060918
  2. ZOLOFT [Concomitant]
  3. TRAZODONE HCL [Concomitant]
  4. TRILEPTAL [Concomitant]
  5. XANAX [Concomitant]
  6. METHADONE HCL [Concomitant]
  7. LIDOCAINE/PRILOCAINE (EMLA) [Concomitant]
  8. ZITHROMAX [Concomitant]
  9. CEFEPIME [Concomitant]

REACTIONS (18)
  - ANAEMIA [None]
  - ASTHENIA [None]
  - CONSTIPATION [None]
  - COUGH [None]
  - DYSKINESIA [None]
  - DYSPHAGIA [None]
  - DYSPNOEA [None]
  - HAEMATOCRIT DECREASED [None]
  - HAEMOGLOBIN DECREASED [None]
  - LETHARGY [None]
  - LYMPHADENOPATHY [None]
  - NECK PAIN [None]
  - PHARYNGOLARYNGEAL PAIN [None]
  - PLATELET COUNT DECREASED [None]
  - PYREXIA [None]
  - SEPSIS [None]
  - SKIN NECROSIS [None]
  - WHEEZING [None]
